FAERS Safety Report 21109294 (Version 1)
Quarter: 2022Q3

REPORT INFORMATION
  Report Type: Spontaneous
  Country: US (occurrence: US)
  Receive Date: 20220721
  Receipt Date: 20220721
  Transmission Date: 20221027
  Serious: Yes (Other)
  Sender: FDA-Public Use
  Company Number: US-NEBO-PC008809

PATIENT
  Age: 39 Year
  Sex: Female
  Weight: 51.7 kg

DRUGS (2)
  1. MONOFERRIC [Suspect]
     Active Substance: FERRIC DERISOMALTOSE
     Indication: Iron deficiency anaemia
     Route: 050
     Dates: start: 20220701, end: 20220701
  2. BUPRENORPHINE [Concomitant]
     Active Substance: BUPRENORPHINE

REACTIONS (4)
  - Flushing [Recovered/Resolved]
  - Dysarthria [Recovered/Resolved]
  - Chest pain [Recovered/Resolved]
  - Dyspnoea [Recovered/Resolved]

NARRATIVE: CASE EVENT DATE: 20220701
